FAERS Safety Report 9803194 (Version 2)
Quarter: 2014Q1

REPORT INFORMATION
  Report Type: Spontaneous
  Country: US (occurrence: US)
  Receive Date: 20140108
  Receipt Date: 20140108
  Transmission Date: 20141002
  Serious: No
  Sender: FDA-Public Use
  Company Number: US-PFIZER INC-2013162287

PATIENT
  Age: 83 Year
  Sex: Female

DRUGS (2)
  1. LYRICA [Suspect]
     Dosage: UNK
  2. MYSOLINE ^WYETH-AYERST^ [Suspect]
     Indication: TREMOR
     Dosage: UNK
     Dates: start: 20130430, end: 20130813

REACTIONS (2)
  - Rash [Recovered/Resolved]
  - Asthenia [Recovered/Resolved]
